FAERS Safety Report 7717802-6 (Version None)
Quarter: 2011Q3

REPORT INFORMATION
  Report Type: 
  Country: None (occurrence: None)
  Receive Date: 20110830
  Receipt Date: 20110818
  Transmission Date: 20111222
  Serious: Yes (Hospitalization)
  Sender: FDA-Public Use
  Company Number: US-US-EMD SERONO, INC.-7078092

PATIENT
  Sex: Male
  Weight: 14 kg

DRUGS (4)
  1. TYLENOL-500 [Concomitant]
     Indication: PREMEDICATION
  2. REBIF [Suspect]
     Route: 058
     Dates: start: 20110815
  3. MOTRIN [Concomitant]
     Indication: PREMEDICATION
  4. REBIF [Suspect]
     Indication: MULTIPLE SCLEROSIS
     Route: 058
     Dates: start: 20110718, end: 20110815

REACTIONS (3)
  - INSOMNIA [None]
  - PYREXIA [None]
  - MULTIPLE SCLEROSIS RELAPSE [None]
